FAERS Safety Report 7245611-3 (Version None)
Quarter: 2011Q1

REPORT INFORMATION
  Report Type: 
  Country: None (occurrence: None)
  Receive Date: 20110126
  Receipt Date: 20110113
  Transmission Date: 20110831
  Serious: Yes (Other)
  Sender: FDA-Public Use
  Company Number: PHHY2011IT03240

PATIENT
  Sex: Female

DRUGS (2)
  1. TICLOPIDINE HCL [Suspect]
     Dosage: 250 MG
     Route: 048
     Dates: start: 20091211, end: 20101210
  2. NORVASC [Concomitant]
     Dosage: 5 MG, UNK
     Dates: start: 20091211, end: 20101211

REACTIONS (2)
  - EPISTAXIS [None]
  - BLOOD PRESSURE INCREASED [None]
